FAERS Safety Report 23322122 (Version 1)
Quarter: 2023Q4

REPORT INFORMATION
  Report Type: Spontaneous
  Country: AT (occurrence: None)
  Receive Date: 20231220
  Receipt Date: 20231220
  Transmission Date: 20240110
  Serious: Yes (Other)
  Sender: FDA-Public Use
  Company Number: 2023A284738

PATIENT
  Sex: Female

DRUGS (6)
  1. OLAPARIB [Suspect]
     Active Substance: OLAPARIB
     Indication: Non-small cell lung cancer metastatic
     Route: 048
  2. PACLITAXEL [Concomitant]
     Active Substance: PACLITAXEL
  3. PEMBROLIZUMAB [Concomitant]
     Active Substance: PEMBROLIZUMAB
  4. CARBOPLATIN [Concomitant]
     Active Substance: CARBOPLATIN
  5. NIVOLUMAB [Concomitant]
     Active Substance: NIVOLUMAB
  6. IPILIMUMAB [Concomitant]
     Active Substance: IPILIMUMAB

REACTIONS (6)
  - Infection [Unknown]
  - Polyneuropathy [Unknown]
  - Metastases to liver [Unknown]
  - Nausea [Unknown]
  - Asthenia [Unknown]
  - Off label use [Unknown]
